FAERS Safety Report 5162528-9 (Version None)
Quarter: 2006Q4

REPORT INFORMATION
  Report Type: 
  Country: None (occurrence: None)
  Receive Date: 20061201
  Receipt Date: 20050812
  Transmission Date: 20070319
  Serious: Yes (Hospitalization)
  Sender: FDA-Public Use
  Company Number: US-BAYER-200511634BWH

PATIENT
  Age: 57 Year
  Sex: Male
  Weight: 123 kg

DRUGS (19)
  1. SORAFENIB [Suspect]
     Indication: METASTATIC MALIGNANT MELANOMA
     Dosage: TOTAL DAILY DOSE: 800 MG  UNIT DOSE: 200 MG
     Route: 048
     Dates: start: 20050713, end: 20050810
  2. SORAFENIB [Suspect]
     Dosage: TOTAL DAILY DOSE: 400 MG  UNIT DOSE: 200 MG
     Route: 048
     Dates: start: 20050812, end: 20051228
  3. DTIC-DOME [Suspect]
     Dosage: UNIT DOSE: 1000 MG/M2
     Route: 042
     Dates: start: 20050713, end: 20051228
  4. PROLEUKIN [Concomitant]
  5. ATENOLOL [Concomitant]
     Indication: HYPERTENSION
  6. LISINOPRIL [Concomitant]
     Indication: HYPERTENSION
     Route: 048
     Dates: start: 20050801
  7. LOTREL [Concomitant]
  8. ACIPHEX [Concomitant]
     Route: 048
  9. GLUCOSAMINE [Concomitant]
     Route: 048
  10. ATIVAN [Concomitant]
     Indication: NAUSEA
     Route: 048
     Dates: start: 20050720, end: 20050811
  11. ATIVAN [Concomitant]
     Route: 048
     Dates: start: 20051228, end: 20051228
  12. ZOFRAN [Concomitant]
  13. COMPAZINE [Concomitant]
  14. INDOCIN [Concomitant]
  15. LOMOTIL [Concomitant]
  16. ACETAMINOPHEN [Concomitant]
     Indication: PAIN
     Route: 048
     Dates: start: 20050810
  17. LOPRESSOR [Concomitant]
     Indication: HYPERTENSION
     Route: 048
     Dates: start: 20050809
  18. NORVASC [Concomitant]
  19. DOCUSATE SODIUM [Concomitant]

REACTIONS (6)
  - HEADACHE [None]
  - HYPERTENSION [None]
  - HYPOTENSION [None]
  - NAUSEA [None]
  - PYREXIA [None]
  - VISION BLURRED [None]
